FAERS Safety Report 17311498 (Version 1)
Quarter: 2020Q1

REPORT INFORMATION
  Report Type: Spontaneous
  Country: US (occurrence: US)
  Receive Date: 20200123
  Receipt Date: 20200123
  Transmission Date: 20200409
  Serious: No
  Sender: FDA-Public Use
  Company Number: US-ROCHE-2236891

PATIENT
  Age: 39 Year
  Sex: Female
  Weight: 76.27 kg

DRUGS (1)
  1. RITUXAN [Suspect]
     Active Substance: RITUXIMAB
     Indication: IMMUNOGLOBULIN G4 RELATED DISEASE
     Dosage: TWICE EVERY 6 MONTHS ;ONGOING: YES
     Route: 041
     Dates: start: 201803

REACTIONS (3)
  - Intentional product use issue [Unknown]
  - Off label use [Unknown]
  - Mass [Not Recovered/Not Resolved]

NARRATIVE: CASE EVENT DATE: 201812
